FAERS Safety Report 21297495 (Version 4)
Quarter: 2023Q2

REPORT INFORMATION
  Report Type: Spontaneous
  Country: CA (occurrence: CA)
  Receive Date: 20220906
  Receipt Date: 20230516
  Transmission Date: 20230721
  Serious: Yes (Other)
  Sender: FDA-Public Use
  Company Number: CA-PFIZER INC-202200541486

PATIENT
  Age: 27 Year
  Sex: Female
  Weight: 61 kg

DRUGS (8)
  1. ABRILADA [Suspect]
     Active Substance: ADALIMUMAB-AFZB
     Indication: Colitis ulcerative
     Dosage: 40 MG, EVERY 7 DAYS,
     Route: 058
  2. ABRILADA [Suspect]
     Active Substance: ADALIMUMAB-AFZB
     Dosage: 40 MG, EVERY 7 DAYS
     Route: 058
     Dates: start: 20220504, end: 202208
  3. ABRILADA [Suspect]
     Active Substance: ADALIMUMAB-AFZB
     Dosage: 40 MG , EVERY 7 DAY
     Route: 058
     Dates: start: 20220504, end: 2022
  4. ABRILADA [Suspect]
     Active Substance: ADALIMUMAB-AFZB
     Dosage: 1 DF,REINDUCTION 160 MG WEEK 0, 80 MG WEEK 2 THEN 80 MG EVERY WEEK PREFILLED SYRINGE
     Route: 058
     Dates: start: 20220828, end: 2023
  5. ABRILADA [Suspect]
     Active Substance: ADALIMUMAB-AFZB
     Dosage: 40 MG, EVERY WEEKS
     Route: 058
     Dates: start: 2023
  6. IMURAN [Concomitant]
     Active Substance: AZATHIOPRINE
     Dosage: UNK
  7. PREDNISONE [Concomitant]
     Active Substance: PREDNISONE
     Dosage: 40 MG,DECREASING DOSE OVER 2 MONTHS
     Route: 065
     Dates: start: 20220825
  8. MESALAMINE [Concomitant]
     Active Substance: MESALAMINE
     Dosage: 1 DF DOSAGE NOT AVAILABLE
     Route: 065

REACTIONS (6)
  - Maternal exposure during pregnancy [Unknown]
  - Crohn^s disease [Recovering/Resolving]
  - Off label use [Unknown]
  - Off label use [Unknown]
  - Off label use [Unknown]
  - Device use issue [Unknown]

NARRATIVE: CASE EVENT DATE: 20220101
